FAERS Safety Report 8594753-9 (Version None)
Quarter: 2012Q3

REPORT INFORMATION
  Report Type: 
  Country: None (occurrence: None)
  Receive Date: 20120815
  Receipt Date: 20120808
  Transmission Date: 20120928
  Serious: Yes (Hospitalization)
  Sender: FDA-Public Use
  Company Number: JP-GE HEALTHCARE MEDICAL DIAGNOSTICS-MSTR-NO-1206S-0042

PATIENT
  Age: 51 Year
  Sex: Female
  Weight: 49 kg

DRUGS (9)
  1. LEUPROLIDE ACETATE [Concomitant]
  2. ZOMETA [Concomitant]
  3. ARIMIDEX [Concomitant]
  4. DOCETAXEL [Concomitant]
  5. FEMARA [Concomitant]
  6. ADRIAMYCIN PFS [Concomitant]
  7. METASTRON [Suspect]
     Indication: METASTATIC PAIN
     Route: 042
     Dates: start: 20110628, end: 20110628
  8. CYCLOPHOSPHAMIDE [Concomitant]
  9. HERCEPTIN [Concomitant]

REACTIONS (2)
  - PANCYTOPENIA [None]
  - ACUTE PROMYELOCYTIC LEUKAEMIA [None]
